FAERS Safety Report 9295787 (Version 1)
Quarter: 2013Q1

REPORT INFORMATION
  Report Type: Spontaneous
  Country: US (occurrence: None)
  Receive Date: 20130103
  Receipt Date: 20130103
  Transmission Date: 20140127
  Serious: Yes (Other)
  Sender: FDA-Public Use
  Company Number: DSA_47831_2011

PATIENT
  Sex: Female

DRUGS (3)
  1. XENAZINE [Suspect]
     Indication: HUNTINGTON^S DISEASE
     Route: 048
     Dates: start: 201109, end: 20111010
  2. TRAZODONE (UNKNOWN) [Concomitant]
  3. RISPERDAL (UNKNOWN) [Concomitant]

REACTIONS (1)
  - Dyspnoea [None]
